FAERS Safety Report 6984421-9 (Version None)
Quarter: 2010Q3

REPORT INFORMATION
  Report Type: 
  Country: None (occurrence: None)
  Receive Date: 20100915
  Receipt Date: 20100907
  Transmission Date: 20110219
  Serious: Yes (Death)
  Sender: FDA-Public Use
  Company Number: AR-GENZYME-CLOF-1001195

PATIENT
  Age: 8 Year
  Sex: Male

DRUGS (6)
  1. CLOLAR [Suspect]
     Indication: ACUTE LYMPHOCYTIC LEUKAEMIA
     Dosage: 40 MG/M2, QDX5
     Route: 042
  2. CLOLAR [Suspect]
     Dosage: 20 MG/M2, QDX5
     Route: 042
  3. ETOPOSIDE [Suspect]
     Indication: ACUTE LYMPHOCYTIC LEUKAEMIA
     Dosage: 100 MG/M2, QDX5
     Route: 042
  4. ETOPOSIDE [Suspect]
     Dosage: 100 MG/M2, QDX5
     Route: 042
  5. CYCLOPHOSPHAMIDE [Suspect]
     Indication: ACUTE LYMPHOCYTIC LEUKAEMIA
     Dosage: 100 MG/M2, QDX5
     Route: 042
  6. CYCLOPHOSPHAMIDE [Suspect]
     Dosage: 100 MG/M2, QDX5
     Route: 042

REACTIONS (1)
  - ACUTE LYMPHOCYTIC LEUKAEMIA [None]
